FAERS Safety Report 4711382-5 (Version None)
Quarter: 2005Q3

REPORT INFORMATION
  Report Type: 
  Country: None (occurrence: None)
  Receive Date: 20050708
  Receipt Date: 20050627
  Transmission Date: 20060218
  Serious: Yes (Hospitalization)
  Sender: FDA-Public Use
  Company Number: 2005067418

PATIENT
  Age: 81 Year
  Sex: Female

DRUGS (7)
  1. BEXTRA [Suspect]
     Indication: ARTHRITIS
     Dosage: 20 MG (20 MG, 1 IN 1 D), ORAL
     Route: 048
     Dates: end: 20050401
  2. AZITHROMYCIN [Suspect]
     Indication: VIRAL INFECTION
     Dosage: 250 MG (250 MG, 1 IN 1 D), ORAL
     Route: 048
     Dates: start: 20050101, end: 20050101
  3. MORPHINE [Suspect]
     Indication: PROCEDURAL PAIN
  4. BIAXIN [Suspect]
     Indication: VIRAL INFECTION
     Dates: start: 20050101, end: 20050101
  5. ALL OTHER THERAPEUTIC PRODUCTS (ALL OTHER THERAPEUTIC PRODUCTS) [Concomitant]
  6. LEVOTHYROXINE SODIUM [Concomitant]
  7. MULTIVITAMIN [Concomitant]

REACTIONS (20)
  - ASTHENIA [None]
  - BODY HEIGHT DECREASED [None]
  - DRUG EFFECT DECREASED [None]
  - DRUG HYPERSENSITIVITY [None]
  - DYSGEUSIA [None]
  - FATIGUE [None]
  - HERNIA REPAIR [None]
  - INSOMNIA [None]
  - MALAISE [None]
  - NAUSEA [None]
  - PROCEDURAL PAIN [None]
  - PRODUCTIVE COUGH [None]
  - REFUSAL OF TREATMENT BY PATIENT [None]
  - SENSATION OF FOREIGN BODY [None]
  - SKIN DISCOLOURATION [None]
  - SPINAL OSTEOARTHRITIS [None]
  - SPUTUM DISCOLOURED [None]
  - THERAPY NON-RESPONDER [None]
  - VIRAL INFECTION [None]
  - VOMITING [None]
